FAERS Safety Report 5159478-0 (Version None)
Quarter: 2006Q4

REPORT INFORMATION
  Report Type: 
  Country: None (occurrence: None)
  Receive Date: 20061122
  Receipt Date: 20061122
  Transmission Date: 20070319
  Serious: Yes (Hospitalization, Disabling, Other)
  Sender: FDA-Public Use
  Company Number: None

PATIENT
  Sex: Male
  Weight: 75.2971 kg

DRUGS (2)
  1. ARICEPT [Suspect]
     Indication: AMNESIA
     Dosage: 5-10MG   1 DAILY  ORAL
     Route: 048
     Dates: start: 20060628, end: 20060713
  2. ARICEPT [Suspect]
     Indication: CONVULSION
     Dosage: 5-10MG   1 DAILY  ORAL
     Route: 048
     Dates: start: 20060628, end: 20060713

REACTIONS (2)
  - RETINAL DETACHMENT [None]
  - RETINAL HAEMORRHAGE [None]
